FAERS Safety Report 7810069-X (Version None)
Quarter: 2011Q4

REPORT INFORMATION
  Report Type: 
  Country: None (occurrence: None)
  Receive Date: 20111012
  Receipt Date: 20111007
  Transmission Date: 20120403
  Serious: Yes (Hospitalization, Other)
  Sender: FDA-Public Use
  Company Number: US-PFIZER INC-2011240354

PATIENT
  Age: 60 Year
  Sex: Female
  Weight: 70.295 kg

DRUGS (1)
  1. CELEBREX [Suspect]
     Indication: ARTHRITIS
     Dosage: 100 MG, 1X/DAY
     Route: 048
     Dates: start: 20090101

REACTIONS (3)
  - LYMPHOEDEMA [None]
  - SECRETION DISCHARGE [None]
  - DECUBITUS ULCER [None]
